FAERS Safety Report 18999838 (Version 1)
Quarter: 2021Q1

REPORT INFORMATION
  Report Type: Spontaneous
  Country: US (occurrence: US)
  Receive Date: 20210311
  Receipt Date: 20210311
  Transmission Date: 20210420
  Serious: Yes (Other)
  Sender: FDA-Public Use
  Company Number: US-PFIZER INC-2021239535

PATIENT
  Age: 68 Year
  Sex: Male

DRUGS (1)
  1. LATANOPROST. [Suspect]
     Active Substance: LATANOPROST
     Indication: OPEN ANGLE GLAUCOMA
     Dosage: 1 DROP, 1X/DAY (ONE DROP IN LEFT EYE AT BEDTIME)
     Route: 047

REACTIONS (1)
  - Anorgasmia [Unknown]
